FAERS Safety Report 8829408 (Version 2)
Quarter: 2015Q1

REPORT INFORMATION
  Report Type: Report from Study
  Country: US (occurrence: US)
  Receive Date: 20121008
  Receipt Date: 20150310
  Transmission Date: 20150721
  Serious: Yes (Hospitalization, Other)
  Sender: FDA-Public Use
  Company Number: US-ROCHE-1119101

PATIENT
  Sex: Male

DRUGS (17)
  1. AVASTIN [Suspect]
     Active Substance: BEVACIZUMAB
     Indication: COLON CANCER
     Route: 042
     Dates: start: 20040401
  2. BENADRYL [Concomitant]
     Active Substance: DIPHENHYDRAMINE HYDROCHLORIDE
     Route: 065
  3. LEUCOVORIN [Concomitant]
     Active Substance: LEUCOVORIN
     Route: 042
  4. COUMADIN [Concomitant]
     Active Substance: WARFARIN SODIUM
     Route: 048
  5. ERBITUX [Concomitant]
     Active Substance: CETUXIMAB
     Route: 042
  6. ERBITUX [Concomitant]
     Active Substance: CETUXIMAB
     Route: 042
  7. XELODA [Suspect]
     Active Substance: CAPECITABINE
     Indication: COLON CANCER
     Route: 042
  8. OXALIPLATIN. [Suspect]
     Active Substance: OXALIPLATIN
     Indication: COLON CANCER
     Route: 042
  9. LEUCOVORIN [Concomitant]
     Active Substance: LEUCOVORIN
     Route: 042
  10. 5-FU [Concomitant]
     Active Substance: FLUOROURACIL
     Route: 042
  11. FLONASE (UNITED STATES) [Concomitant]
  12. DECADRON [Concomitant]
     Active Substance: DEXAMETHASONE
     Route: 065
  13. IMODIUM [Concomitant]
     Active Substance: LOPERAMIDE HYDROCHLORIDE
  14. IRINOTECAN [Concomitant]
     Active Substance: IRINOTECAN
     Route: 042
  15. 5-FU [Concomitant]
     Active Substance: FLUOROURACIL
     Route: 042
  16. GRANISETRON [Concomitant]
     Active Substance: GRANISETRON
     Route: 065
  17. VALTREX [Concomitant]
     Active Substance: VALACYCLOVIR HYDROCHLORIDE
     Route: 065

REACTIONS (21)
  - Fatigue [Unknown]
  - Hypersomnia [Unknown]
  - Skin toxicity [Unknown]
  - Dizziness [Unknown]
  - Dehydration [Unknown]
  - Palmar-plantar erythrodysaesthesia syndrome [Recovering/Resolving]
  - Renal failure [Unknown]
  - Skin reaction [Unknown]
  - Haemoglobin decreased [Unknown]
  - Metastases to liver [Unknown]
  - Diarrhoea [Unknown]
  - Pain in extremity [Unknown]
  - Weight increased [Recovering/Resolving]
  - Stomatitis [Unknown]
  - Dysphonia [Unknown]
  - Abdominal wound dehiscence [Unknown]
  - Chest pain [Unknown]
  - Colorectal cancer metastatic [Recovering/Resolving]
  - Acne [Recovering/Resolving]
  - Oropharyngeal pain [Unknown]
  - Influenza like illness [Unknown]
